FAERS Safety Report 9768580 (Version 6)
Quarter: 2016Q1

REPORT INFORMATION
  Report Type: Report from Study
  Country: JP (occurrence: JP)
  Receive Date: 20131218
  Receipt Date: 20160210
  Transmission Date: 20160526
  Serious: Yes (Death, Other)
  Sender: FDA-Public Use
  Company Number: JP-ROCHE-1229450

PATIENT

DRUGS (6)
  1. TS-1 [Suspect]
     Active Substance: GIMERACIL\OTERACIL\TEGAFUR
     Indication: COLORECTAL CANCER METASTATIC
     Dosage: FOR 2 WEEKS FOLLOWED BY 1 WEEK REST.
     Route: 048
  2. FLUOROURACIL. [Suspect]
     Active Substance: FLUOROURACIL
     Dosage: GIVEN OVER 48 HOURS, AFTER COMPLETION OF BOLUS DOSE
     Route: 042
  3. BEVACIZUMAB [Suspect]
     Active Substance: BEVACIZUMAB
     Indication: COLORECTAL CANCER METASTATIC
     Dosage: 5 MG/KG IN MFOLFOX GROUP ONCE EVERY 2 WEEKS AND 7.5 MG/KG IN SOX GROUP ONCE EVERY 2 WEEKS
     Route: 042
  4. OXALIPLATIN. [Suspect]
     Active Substance: OXALIPLATIN
     Indication: COLORECTAL CANCER METASTATIC
     Dosage: 85 MG/M2 IN GROUP 1 ONCE EVERY 2 WEEKS, AND 130 MG/M2 ONCE EVERY 2 WEEKS IN GROUP 2.
     Route: 042
  5. FOLINIC ACID [Suspect]
     Active Substance: LEUCOVORIN
     Indication: COLORECTAL CANCER METASTATIC
     Route: 042
  6. FLUOROURACIL. [Suspect]
     Active Substance: FLUOROURACIL
     Indication: COLORECTAL CANCER METASTATIC
     Dosage: BOLUS DOSE ON DAY 1 OF 2 WEEKS CYCLE.
     Route: 040

REACTIONS (26)
  - Leukopenia [Unknown]
  - Hyperbilirubinaemia [Unknown]
  - Neutropenia [Unknown]
  - Aspartate aminotransferase increased [Unknown]
  - Vomiting [Unknown]
  - Embolism [Unknown]
  - Febrile neutropenia [Unknown]
  - Decreased appetite [Unknown]
  - Nausea [Unknown]
  - Infection [Unknown]
  - Thrombosis [Unknown]
  - Death [Fatal]
  - Peripheral sensory neuropathy [Unknown]
  - Gastrointestinal obstruction [Unknown]
  - Alanine aminotransferase increased [Unknown]
  - Fatigue [Unknown]
  - Thrombocytopenia [Unknown]
  - Hypertension [Unknown]
  - Palmar-plantar erythrodysaesthesia syndrome [Unknown]
  - Gastrointestinal stenosis [Unknown]
  - Diarrhoea [Unknown]
  - Anaemia [Unknown]
  - Mucosal inflammation [Unknown]
  - Stomatitis [Unknown]
  - Ileus paralytic [Unknown]
  - Gastrointestinal perforation [Unknown]
